FAERS Safety Report 17942248 (Version 1)
Quarter: 2020Q2

REPORT INFORMATION
  Report Type: Spontaneous
  Country: US (occurrence: US)
  Receive Date: 20200625
  Receipt Date: 20200625
  Transmission Date: 20200714
  Serious: Yes (Other)
  Sender: FDA-Public Use
  Company Number: None

PATIENT
  Age: 41 Year
  Sex: Female
  Weight: 58.5 kg

DRUGS (1)
  1. NP THYROID [Suspect]
     Active Substance: LEVOTHYROXINE\LIOTHYRONINE
     Indication: HYPOTHYROIDISM
     Route: 048

REACTIONS (12)
  - Recalled product administered [None]
  - Headache [None]
  - Temperature intolerance [None]
  - Product measured potency issue [None]
  - Fatigue [None]
  - Palpitations [None]
  - Chest pain [None]
  - Heart rate increased [None]
  - Neck pain [None]
  - Myalgia [None]
  - Muscular weakness [None]
  - Anxiety [None]

NARRATIVE: CASE EVENT DATE: 20200401
